FAERS Safety Report 10451564 (Version 2)
Quarter: 2014Q3

REPORT INFORMATION
  Report Type: Spontaneous
  Country: NL (occurrence: NL)
  Receive Date: 20140914
  Receipt Date: 20140914
  Transmission Date: 20150326
  Serious: Yes (Other)
  Sender: FDA-Public Use
  Company Number: NL-009507513-1207NLD003110

PATIENT
  Age: 31 Year
  Sex: Female

DRUGS (1)
  1. IMPLANON [Suspect]
     Active Substance: ETONOGESTREL
     Dosage: UNK
     Route: 059
     Dates: start: 2009

REACTIONS (4)
  - Menstruation irregular [Unknown]
  - Weight increased [Not Recovered/Not Resolved]
  - Surgery [Recovered/Resolved]
  - Medical device complication [Unknown]

NARRATIVE: CASE EVENT DATE: 201202
